FAERS Safety Report 10359227 (Version 1)
Quarter: 2014Q3

REPORT INFORMATION
  Report Type: Spontaneous
  Country: US (occurrence: None)
  Receive Date: 20140731
  Receipt Date: 20140731
  Transmission Date: 20150326
  Serious: Yes (Life-Threatening)
  Sender: FDA-Public Use
  Company Number: None

PATIENT
  Age: 78 Year
  Sex: Female
  Weight: 107 kg

DRUGS (1)
  1. DABIGATRAN [Suspect]
     Active Substance: DABIGATRAN
     Indication: ATRIAL FIBRILLATION
     Route: 048

REACTIONS (12)
  - Azotaemia [None]
  - International normalised ratio increased [None]
  - Occult blood positive [None]
  - Hypotension [None]
  - Blood potassium increased [None]
  - Haemoglobin decreased [None]
  - Polyp [None]
  - Haemodialysis [None]
  - Vitamin K deficiency [None]
  - Asthenia [None]
  - Lethargy [None]
  - Haemorrhage [None]

NARRATIVE: CASE EVENT DATE: 20140723
